FAERS Safety Report 4290305-X (Version None)
Quarter: 2004Q1

REPORT INFORMATION
  Report Type: 
  Country: None (occurrence: None)
  Receive Date: 20040209
  Receipt Date: 20040128
  Transmission Date: 20041129
  Serious: Yes (Life-Threatening, Hospitalization)
  Sender: FDA-Public Use
  Company Number: US-JNJFOC-20040105216

PATIENT
  Age: 61 Year
  Sex: Male
  Weight: 82.1011 kg

DRUGS (4)
  1. INFLIXIMAB (INFLIXIMAB, RECOMBINANT) LYOPHILIZED POWDER [Suspect]
     Indication: CROHN'S DISEASE
     Dosage: INTRAVENOUS
     Route: 042
     Dates: start: 20030101, end: 20030101
  2. AZATHIOPRINE [Concomitant]
  3. MESALAMINE (MESALAZINE) [Concomitant]
  4. ANTIBIOTICS (ANTIBIOTICS) [Concomitant]

REACTIONS (5)
  - PNEUMONIA STAPHYLOCOCCAL [None]
  - POST PROCEDURAL COMPLICATION [None]
  - PULMONARY EMBOLISM [None]
  - RESPIRATORY FAILURE [None]
  - SMALL INTESTINAL OBSTRUCTION [None]
